FAERS Safety Report 6733881-7 (Version None)
Quarter: 2010Q2

REPORT INFORMATION
  Report Type: 
  Country: None (occurrence: None)
  Receive Date: 20100520
  Receipt Date: 20100514
  Transmission Date: 20101027
  Serious: Yes (Hospitalization)
  Sender: FDA-Public Use
  Company Number: EE-ROCHE-701967

PATIENT
  Sex: Female
  Weight: 70 kg

DRUGS (2)
  1. PEGASYS [Suspect]
     Dosage: 48 WEEKS ANTIVIRAL TREATMENT STOPPED ON 20 APRIL 2010 AS PLANNED
     Route: 058
     Dates: start: 20090527, end: 20100420
  2. COPEGUS [Suspect]
     Dosage: 48 WEEKS ANTIVIRAL TREATMENT STOPPED ON 20 APRIL 2010 AS PLANNED
     Route: 048
     Dates: start: 20090527, end: 20100420

REACTIONS (1)
  - INTERVERTEBRAL DISC PROTRUSION [None]
